FAERS Safety Report 7379941-1 (Version None)
Quarter: 2011Q1

REPORT INFORMATION
  Report Type: 
  Country: None (occurrence: None)
  Receive Date: 20110329
  Receipt Date: 20110315
  Transmission Date: 20110831
  Serious: Yes (Hospitalization)
  Sender: FDA-Public Use
  Company Number: PHHO2011DE04716

PATIENT
  Sex: Female
  Weight: 62.8 kg

DRUGS (1)
  1. FTY [Suspect]
     Indication: MULTIPLE SCLEROSIS
     Dosage: 0.5 MG, UNK
     Route: 048
     Dates: start: 20101109, end: 20110303

REACTIONS (2)
  - BLADDER NEOPLASM [None]
  - TUMOUR EXCISION [None]
